FAERS Safety Report 11356431 (Version 1)
Quarter: 2015Q3

REPORT INFORMATION
  Report Type: Spontaneous
  Country: IN (occurrence: IN)
  Receive Date: 20150807
  Receipt Date: 20150807
  Transmission Date: 20151125
  Serious: Yes (Other)
  Sender: FDA-Public Use
  Company Number: IN-ASTRAZENECA-2015SE75215

PATIENT
  Sex: Male

DRUGS (4)
  1. FORXIGA [Suspect]
     Active Substance: DAPAGLIFLOZIN
     Indication: DIABETES MELLITUS
     Route: 048
  2. FORXIGA [Suspect]
     Active Substance: DAPAGLIFLOZIN
     Indication: DIABETES MELLITUS
     Route: 048
  3. METFORMIN [Suspect]
     Active Substance: METFORMIN HYDROCHLORIDE
     Indication: DIABETES MELLITUS
     Dosage: NON-ASTRAZENECA PRODUCT
  4. SULPHYNYLUREA [Concomitant]
     Indication: DIABETES MELLITUS

REACTIONS (4)
  - Urinary tract infection [Recovered/Resolved]
  - Discomfort [Unknown]
  - Burning sensation [Recovered/Resolved]
  - Headache [Unknown]
